FAERS Safety Report 23424559 (Version 1)
Quarter: 2024Q1

REPORT INFORMATION
  Report Type: Spontaneous
  Country: AT (occurrence: AT)
  Receive Date: 20240120
  Receipt Date: 20240120
  Transmission Date: 20240410
  Serious: Yes (Other)
  Sender: FDA-Public Use
  Company Number: None

PATIENT
  Age: 37 Year
  Sex: Female

DRUGS (9)
  1. ESCITALOPRAM [Suspect]
     Active Substance: ESCITALOPRAM OXALATE
     Indication: Product used for unknown indication
     Dates: start: 202304
  2. RISPERIDONE [Suspect]
     Active Substance: RISPERIDONE
     Indication: Product used for unknown indication
     Dates: start: 20230609, end: 20230621
  3. LEVOTHYROXINE [Concomitant]
     Active Substance: LEVOTHYROXINE\LEVOTHYROXINE SODIUM
     Dates: start: 2022
  4. PREGABALIN [Concomitant]
     Active Substance: PREGABALIN
     Dates: start: 202304
  5. Temesta [Concomitant]
     Dates: start: 20230609, end: 20230716
  6. MELATONIN [Concomitant]
     Active Substance: MELATONIN
     Dates: start: 20230621
  7. MIRTAZAPINE [Concomitant]
     Active Substance: MIRTAZAPINE
     Dates: start: 202304
  8. FOLIC ACID [Concomitant]
     Active Substance: FOLIC ACID
     Dates: start: 20230531
  9. QUETIAPINE [Concomitant]
     Active Substance: QUETIAPINE
     Dates: start: 202304, end: 20230605

REACTIONS (1)
  - Galactorrhoea [Recovered/Resolved]

NARRATIVE: CASE EVENT DATE: 20230621
